FAERS Safety Report 5981986-0 (Version None)
Quarter: 2008Q4

REPORT INFORMATION
  Report Type: 
  Country: None (occurrence: None)
  Receive Date: 20081205
  Receipt Date: 20080224
  Transmission Date: 20090506
  Serious: No
  Sender: FDA-Public Use
  Company Number: US-AMGEN-KDL266874

PATIENT
  Sex: Female

DRUGS (2)
  1. ENBREL [Suspect]
     Indication: PSORIATIC ARTHROPATHY
     Route: 058
     Dates: start: 20050721
  2. ENBREL [Suspect]
     Indication: PSORIASIS

REACTIONS (5)
  - NEUROMA [None]
  - PAIN [None]
  - PLANTAR FASCIITIS [None]
  - PYREXIA [None]
  - RESPIRATORY TRACT CONGESTION [None]
